FAERS Safety Report 12434070 (Version 1)
Quarter: 2016Q2

REPORT INFORMATION
  Report Type: Spontaneous
  Country: US (occurrence: US)
  Receive Date: 20160603
  Receipt Date: 20160603
  Transmission Date: 20160815
  Serious: Yes (Other)
  Sender: FDA-Public Use
  Company Number: US-BAYER-2016-101556

PATIENT
  Age: 71 Year
  Sex: Female

DRUGS (4)
  1. MIRALAX [Suspect]
     Active Substance: POLYETHYLENE GLYCOL 3350
     Indication: COLONOSCOPY
     Dosage: UNK
     Route: 048
  2. COUMADIN [Concomitant]
     Active Substance: WARFARIN SODIUM
  3. RYTHMOL [Concomitant]
     Active Substance: PROPAFENONE HYDROCHLORIDE
  4. MAGNESIUM CITRATE. [Concomitant]
     Active Substance: MAGNESIUM CITRATE

REACTIONS (7)
  - Loss of consciousness [Recovered/Resolved]
  - Off label use [None]
  - Drug prescribing error [None]
  - Circumstance or information capable of leading to medication error [None]
  - Asthenia [Recovered/Resolved]
  - Off label use [None]
  - Nausea [Recovered/Resolved]

NARRATIVE: CASE EVENT DATE: 2016
